FAERS Safety Report 9391740 (Version 2)
Quarter: 2013Q3

REPORT INFORMATION
  Report Type: Spontaneous
  Country: RU (occurrence: RU)
  Receive Date: 20130709
  Receipt Date: 20130716
  Transmission Date: 20140515
  Serious: Yes (Other)
  Sender: FDA-Public Use
  Company Number: RU-VIIV HEALTHCARE LIMITED-B0905978A

PATIENT
  Sex: Female

DRUGS (6)
  1. ABACAVIR [Suspect]
     Indication: HIV INFECTION
     Route: 048
     Dates: start: 201012
  2. LAMIVUDINE-HIV [Suspect]
     Indication: HIV INFECTION
     Route: 048
     Dates: start: 201012
  3. KALETRA [Suspect]
     Indication: HIV INFECTION
     Route: 048
     Dates: start: 201105
  4. NEVIRAPINE [Concomitant]
     Indication: HIV INFECTION
     Route: 048
     Dates: start: 201105, end: 201306
  5. ANTI-TUBERCULOSIS MEDICATION [Concomitant]
     Dates: start: 201105, end: 201206
  6. RIFAMPICIN [Concomitant]
     Indication: PROPHYLAXIS

REACTIONS (1)
  - Crystal urine [Not Recovered/Not Resolved]
